FAERS Safety Report 14685606 (Version 1)
Quarter: 2018Q1

REPORT INFORMATION
  Report Type: Spontaneous
  Country: CZ (occurrence: CZ)
  Receive Date: 20180327
  Receipt Date: 20180327
  Transmission Date: 20180509
  Serious: Yes (Other)
  Sender: FDA-Public Use
  Company Number: CZ-MYLANLABS-2018M1020752

PATIENT
  Age: 6 Decade
  Sex: Female
  Weight: 64 kg

DRUGS (2)
  1. LETROZOLE. [Concomitant]
     Active Substance: LETROZOLE
     Indication: BREAST CANCER
     Route: 065
  2. PREDNISONE. [Suspect]
     Active Substance: PREDNISONE
     Indication: PRODUCT USED FOR UNKNOWN INDICATION
     Dosage: UP TO 5 MG A DAY, FOR ABOUT ONE YEAR
     Route: 065

REACTIONS (4)
  - Body height decreased [Unknown]
  - Spinal cord compression [Recovering/Resolving]
  - Osteopenia [Recovering/Resolving]
  - Osteoporosis [Recovering/Resolving]
